FAERS Safety Report 13207800 (Version 1)
Quarter: 2017Q1

REPORT INFORMATION
  Report Type: Spontaneous
  Country: FR (occurrence: FR)
  Receive Date: 20170208
  Receipt Date: 20170208
  Transmission Date: 20170428
  Serious: Yes (Death, Other)
  Sender: FDA-Public Use
  Company Number: FR-009507513-1612FRA014743

PATIENT
  Age: 76 Year
  Sex: Female

DRUGS (2)
  1. CANCIDAS [Suspect]
     Active Substance: CASPOFUNGIN ACETATE
     Indication: CANDIDA INFECTION
  2. VFEND [Suspect]
     Active Substance: VORICONAZOLE

REACTIONS (2)
  - Death [Fatal]
  - Incorrect product storage [Unknown]

NARRATIVE: CASE EVENT DATE: 20170122
